FAERS Safety Report 25919661 (Version 1)
Quarter: 2025Q4

REPORT INFORMATION
  Report Type: Spontaneous
  Country: US (occurrence: US)
  Receive Date: 20251014
  Receipt Date: 20251014
  Transmission Date: 20260117
  Serious: Yes (Other)
  Sender: SANDOZ
  Company Number: US-002147023-NVSC2024US073778

PATIENT

DRUGS (2)
  1. BRIMONIDINE [Suspect]
     Active Substance: BRIMONIDINE TARTRATE
     Indication: Product used for unknown indication
     Dosage: UNK ((9541X), SOLUTION
     Route: 065
  2. PREDNISOLONE [Suspect]
     Active Substance: PREDNISOLONE
     Indication: Product used for unknown indication
     Dosage: UNK ((6294X), EYE DROPS, SUSPENSION
     Route: 065

REACTIONS (2)
  - Endophthalmitis [Unknown]
  - Toxic anterior segment syndrome [Unknown]
